FAERS Safety Report 15881922 (Version 1)
Quarter: 2019Q1

REPORT INFORMATION
  Report Type: Spontaneous
  Country: US (occurrence: US)
  Receive Date: 20190128
  Receipt Date: 20190128
  Transmission Date: 20190417
  Serious: Yes (Death, Other)
  Sender: FDA-Public Use
  Company Number: US-PFIZER INC-2019035769

PATIENT

DRUGS (1)
  1. PROTONIX [Suspect]
     Active Substance: PANTOPRAZOLE SODIUM
     Dosage: FOR MULTIPLE AND VARIOUS YEARS AND DATES.

REACTIONS (3)
  - Acute kidney injury [Unknown]
  - Death [Fatal]
  - Renal failure [Unknown]
